FAERS Safety Report 10732353 (Version 3)
Quarter: 2016Q1

REPORT INFORMATION
  Report Type: Report from Study
  Country: US (occurrence: US)
  Receive Date: 20150123
  Receipt Date: 20160108
  Transmission Date: 20160525
  Serious: Yes (Hospitalization, Other)
  Sender: FDA-Public Use
  Company Number: US-AMGEN-USASP2015005236

PATIENT
  Age: 65 Year
  Sex: Female

DRUGS (3)
  1. ENBREL [Suspect]
     Active Substance: ETANERCEPT
     Dosage: UNK
     Route: 065
  2. ENBREL [Suspect]
     Active Substance: ETANERCEPT
     Indication: RHEUMATOID ARTHRITIS
     Dosage: 50 MG, QWK
     Route: 065
     Dates: start: 2008
  3. MORPHINE [Concomitant]
     Active Substance: MORPHINE

REACTIONS (13)
  - Cerebrovascular accident [Recovered/Resolved]
  - Memory impairment [Unknown]
  - Malaise [Unknown]
  - Gait disturbance [Unknown]
  - Fatigue [Recovered/Resolved]
  - Mobility decreased [Unknown]
  - Spinal operation [Unknown]
  - Sleep disorder [Recovered/Resolved]
  - Fall [Unknown]
  - Spinal laminectomy [Unknown]
  - Skin mass [Unknown]
  - Shoulder arthroplasty [Unknown]
  - Diarrhoea [Unknown]

NARRATIVE: CASE EVENT DATE: 2013
